FAERS Safety Report 20892005 (Version 1)
Quarter: 2022Q2

REPORT INFORMATION
  Report Type: Spontaneous
  Country: CN (occurrence: CN)
  Receive Date: 20220530
  Receipt Date: 20220530
  Transmission Date: 20220721
  Serious: Yes (Other)
  Sender: FDA-Public Use
  Company Number: CN-PFIZER INC-202200761563

PATIENT
  Age: 17 Month
  Sex: Male
  Weight: 10 kg

DRUGS (2)
  1. ZITHROMAX [Suspect]
     Active Substance: AZITHROMYCIN DIHYDRATE
     Indication: Mycoplasma infection
     Dosage: 0.1 G, 1X/DAY
     Route: 041
     Dates: start: 20220519, end: 20220523
  2. ZITHROMAX [Suspect]
     Active Substance: AZITHROMYCIN DIHYDRATE
     Dosage: UNK

REACTIONS (1)
  - Infantile vomiting [Recovering/Resolving]

NARRATIVE: CASE EVENT DATE: 20220519
